FAERS Safety Report 24346099 (Version 1)
Quarter: 2024Q3

REPORT INFORMATION
  Report Type: Spontaneous
  Country: IN (occurrence: IN)
  Receive Date: 20240921
  Receipt Date: 20240921
  Transmission Date: 20241016
  Serious: Yes (Death, Life-Threatening)
  Sender: ACCORD
  Company Number: IN-MLMSERVICE-20240903-PI178651-00218-2

PATIENT
  Age: 64 Year
  Sex: Male

DRUGS (10)
  1. METHOTREXATE [Suspect]
     Active Substance: METHOTREXATE
     Indication: Paraneoplastic dermatomyositis
     Dates: start: 2018, end: 2018
  2. MYCOPHENOLATE MOFETIL [Suspect]
     Active Substance: MYCOPHENOLATE MOFETIL
     Indication: Paraneoplastic dermatomyositis
     Route: 048
  3. AZATHIOPRINE [Suspect]
     Active Substance: AZATHIOPRINE
     Indication: Paraneoplastic dermatomyositis
     Dates: start: 2018
  4. CYCLOSPORINE [Suspect]
     Active Substance: CYCLOSPORINE
     Indication: Paraneoplastic dermatomyositis
     Dates: start: 2020, end: 2020
  5. HYDROXYCHLOROQUINE [Suspect]
     Active Substance: HYDROXYCHLOROQUINE
     Indication: Paraneoplastic dermatomyositis
     Dates: start: 2018
  6. PREDNISOLONE [Suspect]
     Active Substance: PREDNISOLONE
     Indication: Paraneoplastic dermatomyositis
     Dosage: DOSE WAS TAPERED AND CONTINUED IN LOW DOSES
     Route: 048
     Dates: start: 2018, end: 2019
  7. MYCOPHENOLATE MOFETIL [Suspect]
     Active Substance: MYCOPHENOLATE MOFETIL
     Indication: Paraneoplastic dermatomyositis
     Dates: start: 2020, end: 2020
  8. MYCOPHENOLATE MOFETIL [Suspect]
     Active Substance: MYCOPHENOLATE MOFETIL
     Indication: Paraneoplastic dermatomyositis
     Dosage: DOSE WAS ESCALATED TO 2.5 GRAMS IN DIVIDED DOSES
     Route: 048
     Dates: start: 2020
  9. MYCOPHENOLATE MOFETIL [Suspect]
     Active Substance: MYCOPHENOLATE MOFETIL
     Indication: Paraneoplastic dermatomyositis
     Dosage: MMF WAS REPLACED
     Route: 048
     Dates: start: 2019, end: 2020
  10. PREDNISOLONE [Suspect]
     Active Substance: PREDNISOLONE
     Indication: Paraneoplastic dermatomyositis
     Route: 048
     Dates: start: 2018, end: 2018

REACTIONS (1)
  - Non-Hodgkin^s lymphoma [Fatal]

NARRATIVE: CASE EVENT DATE: 20200101
